FAERS Safety Report 7763460-4 (Version None)
Quarter: 2011Q3

REPORT INFORMATION
  Report Type: 
  Country: None (occurrence: None)
  Receive Date: 20110920
  Receipt Date: 20110914
  Transmission Date: 20111222
  Serious: Yes (Hospitalization)
  Sender: FDA-Public Use
  Company Number: DE-PFIZER INC-2011211817

PATIENT
  Age: 96 Year
  Sex: Male
  Weight: 65 kg

DRUGS (8)
  1. FENISTIL [Concomitant]
     Indication: PREMEDICATION
     Dosage: 1 MG, PRIOR TO TEMSIROLIMUS ADMINISTRATION
  2. RANITIDINE [Concomitant]
     Indication: PREMEDICATION
     Dosage: 50 MG, PRIOR TO TEMSIROLIMUS ADMINISTRATION
  3. CLOPIDOGREL [Concomitant]
     Dosage: 75 MG, UNK
  4. ASPIRIN [Concomitant]
     Dosage: 100 MG, UNK
  5. TEMSIROLIMUS [Suspect]
     Dosage: 175 MG, SINGLE
     Route: 042
     Dates: start: 20110526, end: 20110526
  6. TEMSIROLIMUS [Suspect]
     Dosage: 100 MG, SINGLE
     Route: 042
     Dates: start: 20110610, end: 20110610
  7. TEMSIROLIMUS [Suspect]
     Indication: MANTLE CELL LYMPHOMA
     Dosage: 150 MG, SINGLE
     Route: 042
     Dates: start: 20110519, end: 20110519
  8. TEMSIROLIMUS [Suspect]
     Dosage: 75 MG, FREQUENCY UNKNOWN
     Dates: start: 20110617, end: 20110805

REACTIONS (2)
  - DEPRESSION [None]
  - SUICIDE ATTEMPT [None]
